FAERS Safety Report 17988099 (Version 1)
Quarter: 2020Q3

REPORT INFORMATION
  Report Type: Spontaneous
  Country: US (occurrence: US)
  Receive Date: 20200706
  Receipt Date: 20200706
  Transmission Date: 20201103
  Serious: No
  Sender: FDA-Public Use
  Company Number: None

PATIENT
  Age: 64 Year
  Sex: Female
  Weight: 85.05 kg

DRUGS (17)
  1. CAPECITABINE. [Suspect]
     Active Substance: CAPECITABINE
     Indication: BREAST CANCER FEMALE
     Route: 048
     Dates: start: 20200625
  2. METHADONE [Concomitant]
     Active Substance: METHADONE HYDROCHLORIDE
  3. DOCUSATE 100MG [Concomitant]
     Active Substance: DOCUSATE
  4. EPIPEN [Concomitant]
     Active Substance: EPINEPHRINE
  5. ACETAMINOPHEN. [Concomitant]
     Active Substance: ACETAMINOPHEN
  6. FLUTICASONE 50MCG/ACT [Concomitant]
  7. LORATIDINE 10MG [Concomitant]
  8. OXYCODONE 5MG [Concomitant]
     Active Substance: OXYCODONE
  9. ACYCLOVIR. [Concomitant]
     Active Substance: ACYCLOVIR
  10. VICKS NYQUIL [Concomitant]
     Active Substance: ACETAMINOPHEN\DEXTROMETHORPHAN HYDROBROMIDE\DOXYLAMINE SUCCINATE
  11. CHOLECALCIFEROL 1000UNIT [Concomitant]
  12. FLUOXETINE 40MG [Concomitant]
     Active Substance: FLUOXETINE HYDROCHLORIDE
  13. FUROSEMIDE 20MG [Concomitant]
     Active Substance: FUROSEMIDE
  14. LORAZEPAM 2MG [Concomitant]
     Active Substance: LORAZEPAM
  15. MECLIZINE 12.5MG [Concomitant]
  16. ASPIRIN 81MG [Concomitant]
     Active Substance: ASPIRIN
  17. GABAPENTIN 600MG [Concomitant]
     Active Substance: GABAPENTIN

REACTIONS (1)
  - Dysuria [None]

NARRATIVE: CASE EVENT DATE: 20200706
